FAERS Safety Report 25104998 (Version 1)
Quarter: 2025Q1

REPORT INFORMATION
  Report Type: Spontaneous
  Country: US (occurrence: None)
  Receive Date: 20250320
  Receipt Date: 20250320
  Transmission Date: 20250409
  Serious: Yes (Hospitalization)
  Sender: FDA-CTU
  Company Number: None

PATIENT
  Age: 77 Year
  Sex: Male

DRUGS (1)
  1. APIXABAN [Suspect]
     Active Substance: APIXABAN
     Indication: Atrial fibrillation

REACTIONS (7)
  - Gastrointestinal haemorrhage [None]
  - Red blood cell transfusion [None]
  - Anaemia [None]
  - Microcytic anaemia [None]
  - Duodenal polyp [None]
  - Large intestine polyp [None]
  - Small intestine carcinoma [None]

NARRATIVE: CASE EVENT DATE: 20250110
